FAERS Safety Report 15227527 (Version 2)
Quarter: 2018Q3

REPORT INFORMATION
  Report Type: Spontaneous
  Country: US (occurrence: US)
  Receive Date: 20180801
  Receipt Date: 20180830
  Transmission Date: 20181010
  Serious: Yes (Other)
  Sender: FDA-Public Use
  Company Number: US-GILEAD-2018-0352657

PATIENT
  Age: 54 Year
  Sex: Male
  Weight: 52.61 kg

DRUGS (5)
  1. EPCLUSA [Suspect]
     Active Substance: SOFOSBUVIR\VELPATASVIR
     Indication: CHRONIC HEPATITIS C
     Dosage: UNK
     Route: 065
     Dates: start: 20170209, end: 20170504
  2. VOSEVI [Suspect]
     Active Substance: SOFOSBUVIR\VELPATASVIR\VOXILAPREVIR
     Indication: CHRONIC HEPATITIS C
     Dosage: 1 DF, QD
     Route: 048
     Dates: start: 20171214, end: 20180312
  3. FISH OIL [Concomitant]
     Active Substance: FISH OIL
  4. RANITIDINE. [Concomitant]
     Active Substance: RANITIDINE
     Dosage: 150 MG, BID
     Route: 048
     Dates: start: 20161221
  5. MULTIVITAMIN                       /00097801/ [Concomitant]
     Active Substance: VITAMINS
     Dosage: UNK
     Dates: start: 20161221

REACTIONS (2)
  - Hepatitis C [Unknown]
  - Drug ineffective [Unknown]
